FAERS Safety Report 4767790-X (Version None)
Quarter: 2005Q3

REPORT INFORMATION
  Report Type: 
  Country: None (occurrence: None)
  Receive Date: 20050912
  Receipt Date: 20050825
  Transmission Date: 20060218
  Serious: Yes (Hospitalization)
  Sender: FDA-Public Use
  Company Number: 32311

PATIENT
  Age: 72 Year
  Sex: Female

DRUGS (2)
  1. TRAVATAN [Suspect]
     Indication: GLAUCOMA
     Dosage: OPTH
     Route: 047
  2. BETAXOLOL HCL [Concomitant]

REACTIONS (1)
  - CORNEAL OEDEMA [None]
